FAERS Safety Report 25845356 (Version 2)
Quarter: 2025Q4

REPORT INFORMATION
  Report Type: Spontaneous
  Country: EU (occurrence: EU)
  Receive Date: 20250925
  Receipt Date: 20251010
  Transmission Date: 20260118
  Serious: Yes (Death)
  Sender: ALKEM
  Company Number: None

PATIENT
  Age: 21 Year
  Sex: Female

DRUGS (4)
  1. PREGABALIN [Suspect]
     Active Substance: PREGABALIN
     Indication: Product used for unknown indication
     Dosage: UNK
     Route: 065
  2. HEROIN [Suspect]
     Active Substance: DIAMORPHINE
     Indication: Product used for unknown indication
     Dosage: UNK
     Route: 065
  3. SGT-151 [Suspect]
     Active Substance: SGT-151
     Indication: Product used for unknown indication
     Dosage: UNK
     Route: 065
  4. DIAMORPHINE [Suspect]
     Active Substance: DIAMORPHINE
     Indication: Product used for unknown indication
     Dosage: UNK
     Route: 065

REACTIONS (1)
  - Toxicity to various agents [Fatal]
